FAERS Safety Report 22345510 (Version 1)
Quarter: 2023Q2

REPORT INFORMATION
  Report Type: Spontaneous
  Country: US (occurrence: US)
  Receive Date: 20230519
  Receipt Date: 20230519
  Transmission Date: 20230722
  Serious: No
  Sender: FDA-Public Use
  Company Number: US-TEVA-2023-US-2856107

PATIENT
  Sex: Female

DRUGS (2)
  1. FLUOXETINE [Suspect]
     Active Substance: FLUOXETINE HYDROCHLORIDE
     Indication: Depression
     Dosage: STRENGTH: 10 MG
     Route: 065
     Dates: start: 202302, end: 202303
  2. FLUOXETINE [Suspect]
     Active Substance: FLUOXETINE HYDROCHLORIDE
     Dosage: STRENGTH: 20 MG
     Route: 065
     Dates: start: 202304, end: 202304

REACTIONS (4)
  - Anxiety [Unknown]
  - Drug ineffective [Unknown]
  - Contraindicated product prescribed [Unknown]
  - Intercepted product prescribing error [Unknown]
